FAERS Safety Report 6603272 (Version 2)
Quarter: 2012Q4

REPORT INFORMATION
  Report Type: 
  Country: SE (occurrence: SE)
  Receive Date: 20080401
  Receipt Date: 20121210
  Transmission Date: 20130627
  Serious: Yes (Hospitalization)
  Sender: FDA-Public Use
  Company Number: SE-JNJFOC-20080305287

PATIENT
  Age: 65 Year
  Sex: Male

DRUGS (3)
  1. IBUPROFEN [Suspect]
     Route: 065
  2. IBUPROFEN [Suspect]
     Indication: NASOPHARYNGITIS
     Route: 065
  3. DIGOXIN [Concomitant]

REACTIONS (2)
  - Cardiac failure [Unknown]
  - Fluid retention [Unknown]
